FAERS Safety Report 4556494-4 (Version None)
Quarter: 2005Q1

REPORT INFORMATION
  Report Type: 
  Country: None (occurrence: None)
  Receive Date: 20050118
  Receipt Date: 20050106
  Transmission Date: 20050727
  Serious: Yes (Other)
  Sender: FDA-Public Use
  Company Number: HQWYE206417JUL04

PATIENT
  Age: 64 Year
  Sex: Female
  Weight: 97.61 kg

DRUGS (3)
  1. PREMARIN [Suspect]
     Indication: OESTROGEN REPLACEMENT THERAPY
     Dosage: ORAL
     Route: 048
     Dates: start: 19900101, end: 20030101
  2. PREMPRO [Suspect]
  3. PROVERA [Suspect]
     Indication: HORMONE REPLACEMENT THERAPY
     Dosage: ORAL
     Route: 048
     Dates: start: 19900101, end: 20030101

REACTIONS (3)
  - BREAST CANCER METASTATIC [None]
  - METASTASES TO LYMPH NODES [None]
  - RENAL CELL CARCINOMA STAGE UNSPECIFIED [None]
